FAERS Safety Report 5894222-0 (Version None)
Quarter: 2008Q3

REPORT INFORMATION
  Report Type: 
  Country: None (occurrence: None)
  Receive Date: 20080923
  Receipt Date: 20080225
  Transmission Date: 20090109
  Serious: No
  Sender: FDA-Public Use
  Company Number: US-ASTRAZENECA-2008UW03941

PATIENT
  Age: 68 Year
  Sex: Male
  Weight: 86.2 kg

DRUGS (4)
  1. SEROQUEL [Suspect]
     Indication: ANXIETY
     Dosage: 200MG IN AM AND HS/100MG AT LUNCH
     Route: 048
  2. LISINOPRIL [Concomitant]
  3. TRILEPTYL [Concomitant]
  4. COUMADIN [Concomitant]

REACTIONS (3)
  - DYSGEUSIA [None]
  - MUSCLE TWITCHING [None]
  - VISUAL IMPAIRMENT [None]
